FAERS Safety Report 8021474-3 (Version None)
Quarter: 2011Q4

REPORT INFORMATION
  Report Type: 
  Country: None (occurrence: None)
  Receive Date: 20111229
  Receipt Date: 20111214
  Transmission Date: 20120403
  Serious: Yes (Death)
  Sender: FDA-Public Use
  Company Number: JP-20110040

PATIENT
  Age: 67 Year
  Sex: Male

DRUGS (3)
  1. (LIPIODOL ULTRA FLUIDE) (ETHIODIZED OIL) [Suspect]
     Indication: CHEMOTHERAPY
     Dosage: 3 ML (3 ML, 1 IN 1 D), INTRA-ARTERIAL
     Route: 013
     Dates: start: 20060601, end: 20060601
  2. EPIRUBICIN HYDROCHLORIDE [Suspect]
     Indication: CHEMOTHERAPY
     Dosage: 30 MG (30 MG, 1 IN 1 D) INTRA-ARTERIAL
     Route: 013
     Dates: start: 20060701, end: 20060701
  3. MITOMYCIN [Suspect]
     Indication: REGIONAL CHEMOTHERAPY
     Dosage: 6 MG (6 MG, 1 IN 1 D), INTRA-ARTERIAL
     Route: 013
     Dates: start: 20060701, end: 20060701

REACTIONS (6)
  - NEOPLASM PROGRESSION [None]
  - OESOPHAGEAL VARICES HAEMORRHAGE [None]
  - HEPATIC FAILURE [None]
  - HEPATIC NEOPLASM MALIGNANT [None]
  - OFF LABEL USE [None]
  - TUMOUR THROMBOSIS [None]
